FAERS Safety Report 7321076-8 (Version None)
Quarter: 2011Q1

REPORT INFORMATION
  Report Type: 
  Country: None (occurrence: None)
  Receive Date: 20110228
  Receipt Date: 20110219
  Transmission Date: 20110831
  Serious: Yes (Other)
  Sender: FDA-Public Use
  Company Number: CL-BAXTER-2011BH004514

PATIENT
  Age: 67 Year
  Sex: Male

DRUGS (1)
  1. IMMUNE GLOBULIN INTRAVENOUS (HUMAN) [Suspect]
     Indication: TOXIC EPIDERMAL NECROLYSIS
     Route: 065

REACTIONS (1)
  - RENAL FAILURE [None]
